FAERS Safety Report 7560449-5 (Version None)
Quarter: 2011Q2

REPORT INFORMATION
  Report Type: 
  Country: None (occurrence: None)
  Receive Date: 20110621
  Receipt Date: 20110610
  Transmission Date: 20111010
  Serious: Yes (Hospitalization)
  Sender: FDA-Public Use
  Company Number: JP-BAXTER-2011BH019859

PATIENT
  Sex: Female

DRUGS (2)
  1. IFOSFAMIDE [Suspect]
     Indication: CERVIX CARCINOMA
     Route: 041
     Dates: start: 20110601, end: 20110602
  2. PACLITAXEL [Suspect]
     Indication: CERVIX CARCINOMA
     Route: 041
     Dates: start: 20110601, end: 20110601

REACTIONS (2)
  - INTERSTITIAL LUNG DISEASE [None]
  - ACUTE RESPIRATORY FAILURE [None]
